FAERS Safety Report 9198601 (Version 2)
Quarter: 2013Q2

REPORT INFORMATION
  Report Type: Spontaneous
  Country: JP (occurrence: JP)
  Receive Date: 20130329
  Receipt Date: 20130411
  Transmission Date: 20140414
  Serious: Yes (Hospitalization)
  Sender: FDA-Public Use
  Company Number: JP-JNJFOC-20130315333

PATIENT
  Age: 61 Year
  Sex: Male
  Weight: 65 kg

DRUGS (14)
  1. SIMPONI [Suspect]
     Indication: RHEUMATOID ARTHRITIS
     Route: 058
     Dates: start: 20111011
  2. RHEUMATREX [Suspect]
     Indication: RHEUMATOID ARTHRITIS
     Route: 048
  3. RHEUMATREX [Suspect]
     Indication: RHEUMATOID ARTHRITIS
     Route: 048
  4. PREDNISOLONE [Suspect]
     Indication: RHEUMATOID ARTHRITIS
     Route: 048
  5. PREDNISOLONE [Suspect]
     Indication: RHEUMATOID ARTHRITIS
     Route: 048
  6. URALYT-U [Concomitant]
     Indication: HYPERURICAEMIA
     Route: 048
  7. CIBENOL [Concomitant]
     Indication: ARRHYTHMIA
     Route: 048
  8. OMEPRAL [Concomitant]
     Indication: PROPHYLAXIS
     Route: 048
  9. ARTIST [Concomitant]
     Indication: HYPERTENSION
     Route: 048
  10. MICARDIS [Concomitant]
     Indication: HYPERTENSION
     Route: 048
  11. URINORM [Concomitant]
     Indication: HYPERURICAEMIA
     Route: 048
  12. ZYLORIC [Concomitant]
     Indication: HYPERURICAEMIA
     Route: 048
  13. ACTONEL [Concomitant]
     Indication: OSTEOPOROSIS
     Route: 048
  14. BARACLUDE [Concomitant]
     Indication: HEPATITIS B
     Route: 048

REACTIONS (2)
  - Pneumocystis jirovecii pneumonia [Recovered/Resolved]
  - Candida test positive [Unknown]
